FAERS Safety Report 5478442-5 (Version None)
Quarter: 2007Q4

REPORT INFORMATION
  Report Type: 
  Country: None (occurrence: None)
  Receive Date: 20071005
  Receipt Date: 20070925
  Transmission Date: 20080405
  Serious: Yes (Other)
  Sender: FDA-Public Use
  Company Number: FR-BRISTOL-MYERS SQUIBB COMPANY-13925169

PATIENT
  Sex: Female

DRUGS (3)
  1. HOLOXAN [Suspect]
     Indication: UTERINE CANCER
     Route: 042
  2. UROMITEXAN [Concomitant]
  3. BENZODIAZEPINE [Concomitant]

REACTIONS (3)
  - COMA [None]
  - ENCEPHALOPATHY [None]
  - HALLUCINATION [None]
